FAERS Safety Report 6736984-6 (Version None)
Quarter: 2010Q2

REPORT INFORMATION
  Report Type: 
  Country: None (occurrence: None)
  Receive Date: 20100523
  Receipt Date: 20100407
  Transmission Date: 20101027
  Serious: No
  Sender: FDA-Public Use
  Company Number: US-ALLERGAN-1004537US

PATIENT
  Sex: Female

DRUGS (3)
  1. COMBIGAN [Suspect]
     Indication: GLAUCOMA
     Dosage: UNK
     Route: 047
     Dates: start: 20100329
  2. COMBIGAN [Suspect]
     Dosage: UNK
     Route: 047
     Dates: start: 20091001
  3. ACTONEL [Concomitant]
     Indication: OSTEOPOROSIS

REACTIONS (1)
  - OCULAR HYPERAEMIA [None]
